FAERS Safety Report 14015770 (Version 2)
Quarter: 2017Q4

REPORT INFORMATION
  Report Type: Spontaneous
  Country: JP (occurrence: JP)
  Receive Date: 20170927
  Receipt Date: 20171101
  Transmission Date: 20180321
  Serious: Yes (Hospitalization)
  Sender: FDA-Public Use
  Company Number: JP-EISAI MEDICAL RESEARCH-EC-2017-031417

PATIENT
  Age: 33 Year
  Sex: Female

DRUGS (3)
  1. HERBAL NOS [Suspect]
     Active Substance: HERBALS
     Indication: ABDOMINAL DISCOMFORT
     Route: 048
     Dates: start: 20150804, end: 20150820
  2. HERBAL NOS [Suspect]
     Active Substance: HERBALS
     Route: 048
     Dates: start: 20150904
  3. RABECURE [Suspect]
     Active Substance: AMOXICILLIN\CLARITHROMYCIN\RABEPRAZOLE
     Indication: HELICOBACTER INFECTION
     Route: 048
     Dates: start: 20150827, end: 20150903

REACTIONS (1)
  - Erythema multiforme [Recovered/Resolved]

NARRATIVE: CASE EVENT DATE: 20150904
